FAERS Safety Report 9876954 (Version 1)
Quarter: 2014Q1

REPORT INFORMATION
  Report Type: Spontaneous
  Country: US (occurrence: US)
  Receive Date: 20140206
  Receipt Date: 20140206
  Transmission Date: 20141002
  Serious: No
  Sender: FDA-Public Use
  Company Number: US-PFIZER INC-2014030456

PATIENT
  Age: 72 Year
  Sex: Female
  Weight: 68.03 kg

DRUGS (2)
  1. CELEBREX [Suspect]
     Indication: ARTHRALGIA
     Dosage: 200 MG, 1X/DAY
     Route: 048
  2. LEVOTHYROXINE [Concomitant]
     Indication: THYROID DISORDER
     Dosage: 75 UG, UNK

REACTIONS (1)
  - Herpes zoster [Unknown]
